FAERS Safety Report 10053700 (Version 2)
Quarter: 2014Q2

REPORT INFORMATION
  Report Type: Spontaneous
  Country: IT (occurrence: IT)
  Receive Date: 20140402
  Receipt Date: 20140415
  Transmission Date: 20141212
  Serious: Yes (Death, Other)
  Sender: FDA-Public Use
  Company Number: IT-OTSUKA-US-2014-10629

PATIENT
  Age: 3 Year
  Sex: Female

DRUGS (5)
  1. BUSULFEX [Suspect]
     Indication: STEM CELL TRANSPLANT
     Dosage: UNK
     Route: 065
  2. MELPHALAN [Suspect]
     Indication: STEM CELL TRANSPLANT
     Dosage: UNK
     Route: 065
  3. CYCLOPHOSPHAMIDE [Concomitant]
     Indication: STEM CELL TRANSPLANT
     Dosage: 1.5 G/M2, UNK
  4. ETOPOSIDE [Concomitant]
     Indication: STEM CELL TRANSPLANT
     Dosage: 150 MG/M2, UNK X3 DAYS
  5. DOXORUBICIN [Concomitant]
     Indication: STEM CELL TRANSPLANT
     Dosage: 25 MG/M2, UNK X3 DAYS

REACTIONS (2)
  - Neoplasm progression [Fatal]
  - Bone marrow toxicity [Unknown]
